FAERS Safety Report 4348558-5 (Version None)
Quarter: 2004Q2

REPORT INFORMATION
  Report Type: 
  Country: None (occurrence: None)
  Receive Date: 20040423
  Receipt Date: 20040416
  Transmission Date: 20050107
  Serious: Yes (Death)
  Sender: FDA-Public Use
  Company Number: USA-2004-0014626

PATIENT
  Age: 49 Year
  Sex: Female
  Weight: 71.2 kg

DRUGS (14)
  1. OXYCODONE HCL [Suspect]
  2. HYDROCODONE BITARTRATE [Suspect]
  3. ETHANOL (ETHANOL) [Suspect]
  4. ACETAMINOPHEN [Suspect]
  5. ALPRAZOLAM [Suspect]
  6. BUPROPRION (AMFEBUTAMONE) [Suspect]
  7. DOXEPIN (DOXEPIN) [Suspect]
  8. SALICYLIC ACID (SALICYLIC ACID) [Suspect]
  9. CITALOPRAM [Suspect]
  10. DEXTROMETHORPHAN (DEXTROMETHORPHAN) [Suspect]
  11. LORAZEPAM [Suspect]
  12. PAROXETINE HCL [Suspect]
  13. TEMAZEPAM [Suspect]
  14. OXAZEPAM [Suspect]

REACTIONS (9)
  - ARTERIOSCLEROSIS [None]
  - CHRONIC OBSTRUCTIVE AIRWAYS DISEASE [None]
  - CORONARY ARTERY OCCLUSION [None]
  - DRUG SCREEN POSITIVE [None]
  - GRANULOMA [None]
  - HEPATIC CIRRHOSIS [None]
  - HEPATITIS C [None]
  - PLEURAL ADHESION [None]
  - TUBERCULOSIS [None]
